FAERS Safety Report 10253902 (Version 1)
Quarter: 2014Q2

REPORT INFORMATION
  Report Type: Spontaneous
  Country: PE (occurrence: PE)
  Receive Date: 20140623
  Receipt Date: 20140623
  Transmission Date: 20141212
  Serious: Yes (Other)
  Sender: FDA-Public Use
  Company Number: PE-PFIZER INC-2014167379

PATIENT
  Age: 57 Year
  Sex: Female

DRUGS (2)
  1. LIPITOR [Suspect]
     Dosage: 1 DF, DAILY
     Route: 048
  2. LIPITOR [Suspect]
     Dosage: TWO TABLETS OF AN UNSPECIFIED DOSE PER DAY
     Route: 048

REACTIONS (3)
  - Diabetic metabolic decompensation [Unknown]
  - Mood altered [Unknown]
  - Malaise [Unknown]
